FAERS Safety Report 4461598-0 (Version None)
Quarter: 2004Q3

REPORT INFORMATION
  Report Type: 
  Country: None (occurrence: None)
  Receive Date: 20040924
  Receipt Date: 20040924
  Transmission Date: 20050211
  Serious: Yes (Hospitalization)
  Sender: FDA-Public Use
  Company Number: None

PATIENT
  Age: 39 Year
  Sex: Female
  Weight: 81.6475 kg

DRUGS (1)
  1. SULFAMETTHOXAZOLE AND TRIMETHOPRIM [Suspect]
     Dosage: DONT REMEMB
     Dates: start: 20020219, end: 20020224

REACTIONS (22)
  - CARDIOVASCULAR DISORDER [None]
  - DIFFICULTY IN WALKING [None]
  - DRUG HYPERSENSITIVITY [None]
  - DRUG INEFFECTIVE [None]
  - FATIGUE [None]
  - HEADACHE [None]
  - HYPOAESTHESIA [None]
  - INFLUENZA [None]
  - LETHARGY [None]
  - MUSCULAR WEAKNESS [None]
  - NASOPHARYNGITIS [None]
  - NEURALGIA [None]
  - PAIN IN EXTREMITY [None]
  - PARAESTHESIA [None]
  - PERIPHERAL COLDNESS [None]
  - PSYCHOMOTOR HYPERACTIVITY [None]
  - PYREXIA [None]
  - RASH GENERALISED [None]
  - TEMPERATURE INTOLERANCE [None]
  - TREATMENT NONCOMPLIANCE [None]
  - URTICARIA [None]
  - VIRAL INFECTION [None]
